FAERS Safety Report 22259284 (Version 1)
Quarter: 2023Q2

REPORT INFORMATION
  Report Type: Spontaneous
  Country: US (occurrence: None)
  Receive Date: 20230426
  Receipt Date: 20230426
  Transmission Date: 20230722
  Serious: Yes (Disabling)
  Sender: FDA-Public Use
  Company Number: None

PATIENT
  Age: 48 Year
  Sex: Male
  Weight: 96.75 kg

DRUGS (1)
  1. CIPROFLOXACIN [Suspect]
     Active Substance: CIPROFLOXACIN
     Indication: Campylobacter infection
     Dosage: 10 TABLETS TWICE  A DAY ORAL
     Route: 048
     Dates: start: 20230418, end: 20230423

REACTIONS (7)
  - Arthralgia [None]
  - Joint swelling [None]
  - Arthralgia [None]
  - Peripheral swelling [None]
  - Pain in extremity [None]
  - Arthralgia [None]
  - Back pain [None]

NARRATIVE: CASE EVENT DATE: 20230424
